FAERS Safety Report 11497719 (Version 1)
Quarter: 2015Q3

REPORT INFORMATION
  Report Type: Spontaneous
  Country: US (occurrence: US)
  Receive Date: 20150911
  Receipt Date: 20150911
  Transmission Date: 20151125
  Serious: Yes (Death, Other)
  Sender: FDA-Public Use
  Company Number: PHHY2015US108103

PATIENT
  Age: 65 Year
  Sex: Male

DRUGS (1)
  1. TACROLIMUS. [Suspect]
     Active Substance: TACROLIMUS
     Indication: POSTOPERATIVE CARE
     Route: 065

REACTIONS (4)
  - Personality change [Unknown]
  - Brain death [Unknown]
  - Seizure [Unknown]
  - Hyperammonaemia [Fatal]
